FAERS Safety Report 9620399 (Version 1)
Quarter: 2013Q4

REPORT INFORMATION
  Report Type: Spontaneous
  Country: US (occurrence: US)
  Receive Date: 20131015
  Receipt Date: 20131015
  Transmission Date: 20140711
  Serious: No
  Sender: FDA-Public Use
  Company Number: -SAAVPROD-BMS16970535

PATIENT
  Sex: Male

DRUGS (1)
  1. AVALIDE [Suspect]
     Dosage: 1 DF= 300-12.5 UNIT NOS
     Route: 048

REACTIONS (1)
  - Drug dose omission [Unknown]
